FAERS Safety Report 22282854 (Version 2)
Quarter: 2023Q2

REPORT INFORMATION
  Report Type: Report from Study
  Country: CN (occurrence: CN)
  Receive Date: 20230504
  Receipt Date: 20230513
  Transmission Date: 20230722
  Serious: Yes (Other)
  Sender: FDA-Public Use
  Company Number: CN-TAKEDA-2023TUS043177

PATIENT
  Age: 68 Year
  Sex: Male
  Weight: 50 kg

DRUGS (15)
  1. VEDOLIZUMAB [Suspect]
     Active Substance: VEDOLIZUMAB
     Indication: Colitis ulcerative
     Dosage: 300 MILLIGRAM
     Route: 042
     Dates: start: 20220309
  2. MESALAMINE [Suspect]
     Active Substance: MESALAMINE
     Indication: Inflammatory bowel disease
     Dosage: 1 GRAM, TID
     Route: 048
     Dates: start: 20230418, end: 20230420
  3. LEVOFLOXACIN [Concomitant]
     Active Substance: LEVOFLOXACIN
     Indication: Inflammatory bowel disease
     Dosage: 0.5 GRAM, QD
     Route: 048
     Dates: start: 20230425, end: 20230426
  4. DEXTROSE\SODIUM CHLORIDE [Concomitant]
     Active Substance: DEXTROSE\SODIUM CHLORIDE
     Indication: Fluid imbalance
     Dosage: 500 MILLILITER, QD
     Route: 042
     Dates: start: 20230412, end: 20230424
  5. POTASSIUM CHLORIDE [Concomitant]
     Active Substance: POTASSIUM CHLORIDE
     Indication: Fluid imbalance
     Dosage: 10 MILLILITER, QD
     Route: 042
     Dates: start: 20230412, end: 20230412
  6. POTASSIUM CHLORIDE [Concomitant]
     Active Substance: POTASSIUM CHLORIDE
     Dosage: 10 MILLILITER, BID
     Route: 042
     Dates: start: 20230413, end: 20230413
  7. POTASSIUM CHLORIDE [Concomitant]
     Active Substance: POTASSIUM CHLORIDE
     Dosage: 10 MILLILITER, QD
     Route: 042
     Dates: start: 20230420, end: 20230426
  8. LACTOBACILLUS ACIDOPHILUS [Concomitant]
     Active Substance: LACTOBACILLUS ACIDOPHILUS
     Indication: Inflammatory bowel disease
     Dosage: 1 GRAM, TID
     Route: 048
     Dates: start: 20230417, end: 20230423
  9. METRONIDAZOLE [Concomitant]
     Active Substance: METRONIDAZOLE
     Indication: Inflammatory bowel disease
     Dosage: 0.4 GRAM, BID
     Route: 048
     Dates: start: 20230418, end: 20230423
  10. VITAMIN B6 [Concomitant]
     Active Substance: PYRIDOXINE HYDROCHLORIDE
     Indication: Fluid imbalance
     Dosage: 0.2 GRAM, QD
     Route: 042
     Dates: start: 20230420, end: 20230426
  11. METHYLPREDNISOLONE SODIUM SUCCINATE [Concomitant]
     Active Substance: METHYLPREDNISOLONE SODIUM SUCCINATE
     Indication: Inflammatory bowel disease
     Dosage: 60 MILLIGRAM, QD
     Route: 042
     Dates: start: 20230420, end: 20230424
  12. CALCIUM CARBONATE\CHOLECALCIFEROL [Concomitant]
     Active Substance: CALCIUM CARBONATE\CHOLECALCIFEROL
     Indication: Fluid imbalance
     Dosage: 3 GRAM
     Route: 048
     Dates: start: 20230420, end: 20230426
  13. RABEPRAZOLE SODIUM [Concomitant]
     Active Substance: RABEPRAZOLE SODIUM
     Indication: Gastrooesophageal reflux disease
     Dosage: 20 MILLIGRAM, BID
     Route: 048
     Dates: start: 20230420, end: 20230423
  14. LACTIC ACID [Concomitant]
     Active Substance: LACTIC ACID
     Indication: Inflammatory bowel disease
     Dosage: 0.33 GRAM, TID
     Route: 048
     Dates: start: 20230421, end: 20230423
  15. ESOMEPRAZOLE SODIUM [Concomitant]
     Active Substance: ESOMEPRAZOLE SODIUM
     Indication: Gastrooesophageal reflux disease
     Dosage: 40 MILLIGRAM, QD
     Route: 042
     Dates: start: 20230423, end: 20230426

REACTIONS (6)
  - Haematochezia [Recovered/Resolved]
  - Dyspepsia [Recovered/Resolved]
  - Purulent discharge [Recovered/Resolved]
  - Abdominal pain upper [Recovered/Resolved]
  - Chest pain [Recovered/Resolved]
  - Abdominal distension [Recovered/Resolved]

NARRATIVE: CASE EVENT DATE: 20230412
